FAERS Safety Report 8363822-0 (Version None)
Quarter: 2012Q2

REPORT INFORMATION
  Report Type: 
  Country: None (occurrence: None)
  Receive Date: 20120516
  Receipt Date: 20120507
  Transmission Date: 20120825
  Serious: Yes (Life-Threatening, Hospitalization)
  Sender: FDA-Public Use
  Company Number: DK-BAYER-2011-107820

PATIENT
  Age: 21 Year
  Sex: Female

DRUGS (7)
  1. PREDNISOLONE [Concomitant]
     Indication: SCLERODERMA
  2. ALNOK [Concomitant]
  3. YASMIN [Suspect]
     Dosage: UNK
     Route: 048
     Dates: end: 20111022
  4. IBUPROFEN [Concomitant]
     Indication: PAIN
  5. ACETAMINOPHEN [Concomitant]
     Indication: PAIN
  6. SULFASALAZINE [Concomitant]
     Indication: SCLERODERMA
     Dosage: 1000MG
  7. ESOMEPRAZOLE MAGNESIUM [Concomitant]
     Dosage: 40MG

REACTIONS (2)
  - COMA [None]
  - INTRACRANIAL VENOUS SINUS THROMBOSIS [None]
